FAERS Safety Report 13187749 (Version 1)
Quarter: 2017Q1

REPORT INFORMATION
  Report Type: Spontaneous
  Country: US (occurrence: US)
  Receive Date: 20170206
  Receipt Date: 20170206
  Transmission Date: 20170428
  Serious: No
  Sender: FDA-Public Use
  Company Number: US-PFIZER INC-2017051130

PATIENT
  Sex: Female

DRUGS (3)
  1. BELATACEPT [Suspect]
     Active Substance: BELATACEPT
  2. BLEPH-10 [Suspect]
     Active Substance: SULFACETAMIDE SODIUM
  3. MORPHINE SULFATE. [Suspect]
     Active Substance: MORPHINE SULFATE

REACTIONS (1)
  - Drug hypersensitivity [Unknown]
